FAERS Safety Report 5962726-8 (Version None)
Quarter: 2008Q4

REPORT INFORMATION
  Report Type: 
  Country: None (occurrence: None)
  Receive Date: 20081124
  Receipt Date: 20081114
  Transmission Date: 20090506
  Serious: Yes (Life-Threatening, Other)
  Sender: FDA-Public Use
  Company Number: IT-JNJFOC-20081104022

PATIENT
  Sex: Male

DRUGS (4)
  1. REOPRO [Suspect]
     Dosage: 17 ML WAS GIVEN WITH A SLOW INFUSION OVER 12 HOURS
     Route: 042
     Dates: start: 20081111
  2. REOPRO [Suspect]
     Indication: ISCHAEMIC CARDIOMYOPATHY
     Route: 042
     Dates: start: 20081111
  3. ASPIRIN [Concomitant]
     Route: 048
  4. PLAVIX [Concomitant]
     Route: 048

REACTIONS (4)
  - HAEMATOMA [None]
  - HAEMOPTYSIS [None]
  - PLATELET ADHESIVENESS DECREASED [None]
  - THROMBOCYTOPENIA [None]
